FAERS Safety Report 4317580-7 (Version None)
Quarter: 2004Q1

REPORT INFORMATION
  Report Type: 
  Country: None (occurrence: None)
  Receive Date: 20040312
  Receipt Date: 20040225
  Transmission Date: 20041129
  Serious: Yes (Life-Threatening, Hospitalization)
  Sender: FDA-Public Use
  Company Number: 2004IM000422

PATIENT
  Age: 40 Year
  Sex: Female

DRUGS (2)
  1. INFERAX (INTERFERON ALFACON-1) [Suspect]
     Indication: HEPATITIS C
     Dosage: 9 UG; QD; SUBCUTANEOUS
     Route: 058
     Dates: start: 20031001
  2. REBETOL [Suspect]
     Indication: HEPATITIS C
     Dosage: 800 MG; QD; ORAL
     Route: 048
     Dates: start: 20031001

REACTIONS (3)
  - CONVULSION [None]
  - HAEMATOMA [None]
  - SUBARACHNOID HAEMORRHAGE [None]
